FAERS Safety Report 6268381-4 (Version None)
Quarter: 2009Q3

REPORT INFORMATION
  Report Type: 
  Country: None (occurrence: None)
  Receive Date: 20090715
  Receipt Date: 20090709
  Transmission Date: 20100115
  Serious: Yes (Hospitalization)
  Sender: FDA-Public Use
  Company Number: DE-ROCHE-634734

PATIENT
  Sex: Female
  Weight: 53 kg

DRUGS (7)
  1. CAPECITABINE [Suspect]
     Indication: COLORECTAL CANCER STAGE IV
     Dosage: DRUG NAME REPORTED AS CAPECITABIN. DOSE: 850 MG/M2. UNITS: 1500 MG. FREQUENCY: 2 WEEKS D1- D14.
     Route: 048
     Dates: start: 20090520, end: 20090525
  2. CAPECITABINE [Suspect]
     Dosage: NAME: CAPECITABIN. UNITS: 850 MG/M2. FREQUENCY: 3 TBL 1500 MG 3-0-3. DOSAGE FORM: PEROS.
     Route: 048
     Dates: start: 20090528
  3. BEVACIZUMAB [Suspect]
     Indication: COLORECTAL CANCER STAGE IV
     Dosage: UNITS: 7.5 MG/M^2. FREQUENCY: D1 D22. DOSAGE FORM: INFUSION
     Route: 042
     Dates: start: 20090520, end: 20090530
  4. BEVACIZUMAB [Suspect]
     Route: 042
  5. OXALIPLATIN [Suspect]
     Indication: COLORECTAL CANCER STAGE IV
     Dosage: UNIT REPORTED AS 100MG/M2. FREQUENCY: 2 HRS,3 WEEKLY. DOSAGE FORM: INFUSION
     Route: 042
     Dates: start: 20090520
  6. IMATINIB MESYLATE [Suspect]
     Indication: COLORECTAL CANCER STAGE IV
     Dosage: UNITS REPORTED AS 300 MG. FREQUENCY REPORTED AS DAILY.
     Route: 048
     Dates: start: 20090520, end: 20090525
  7. IMATINIB MESYLATE [Suspect]
     Dosage: UNITS REPORTED AS 3 TABL AT 100 MG/DIC. ROUTE 21 DAYS
     Route: 048
     Dates: start: 20090527, end: 20090530

REACTIONS (2)
  - PITUITARY HAEMORRHAGE [None]
  - VOMITING [None]
